FAERS Safety Report 4456110-6 (Version None)
Quarter: 2004Q3

REPORT INFORMATION
  Report Type: 
  Country: None (occurrence: None)
  Receive Date: 20040920
  Receipt Date: 20040908
  Transmission Date: 20050211
  Serious: Yes (Hospitalization, Other)
  Sender: FDA-Public Use
  Company Number: JP-2004-027562

PATIENT
  Age: 29 Year
  Sex: Female

DRUGS (1)
  1. PROSCOPE 300(IOPROMIDE) INFUSION [Suspect]
     Indication: UROGRAPHY
     Dosage: 100 ML, 1 DOSE, INTRAVENOUS
     Route: 042
     Dates: start: 20040622, end: 20040622

REACTIONS (4)
  - ANAPHYLACTIC SHOCK [None]
  - CIRCULATORY COLLAPSE [None]
  - LOSS OF CONSCIOUSNESS [None]
  - RHINITIS [None]
